FAERS Safety Report 6496793-2 (Version None)
Quarter: 2009Q4

REPORT INFORMATION
  Report Type: 
  Country: None (occurrence: None)
  Receive Date: 20091125
  Receipt Date: 20090401
  Transmission Date: 20100525
  Serious: Yes (Other)
  Sender: FDA-Public Use
  Company Number: 2009BH005261

PATIENT
  Age: 55 Year
  Sex: Female
  Weight: 70.7611 kg

DRUGS (10)
  1. DIANEAL [Suspect]
     Indication: PERITONEAL DIALYSIS
     Dosage: 12 L ; EVERY DAY ; IP
     Route: 033
     Dates: start: 20080813
  2. CALCITRIOL [Concomitant]
  3. DIALYTE [Concomitant]
  4. PHOSLO [Concomitant]
  5. PLAVIX [Concomitant]
  6. DETROL [Concomitant]
  7. HUMULIN 70/30 [Concomitant]
  8. ACTOS [Concomitant]
  9. ASPIRIN [Concomitant]
  10. FERROUS GLUCONATE [Concomitant]

REACTIONS (1)
  - PERITONITIS [None]
